FAERS Safety Report 11905734 (Version 2)
Quarter: 2016Q1

REPORT INFORMATION
  Report Type: Spontaneous
  Country: IT (occurrence: IT)
  Receive Date: 20160111
  Receipt Date: 20160120
  Transmission Date: 20160526
  Serious: Yes (Other)
  Sender: FDA-Public Use
  Company Number: IT-ACCORD-036817

PATIENT
  Age: 66 Year
  Sex: Male

DRUGS (9)
  1. ATORVASTATIN/ATORVASTATIN CALCIUM [Concomitant]
     Active Substance: ATORVASTATIN CALCIUM
     Route: 048
  2. ACETYLSALICYLIC ACID [Concomitant]
     Active Substance: ASPIRIN
     Route: 048
  3. BARNIDIPINE/BARNIDIPINE HYDROCHLORIDE [Suspect]
     Active Substance: BARNIDIPINE HYDROCHLORIDE
     Indication: PRODUCT USED FOR UNKNOWN INDICATION
     Route: 048
  4. BISOPROLOL [Suspect]
     Active Substance: BISOPROLOL
     Indication: PRODUCT USED FOR UNKNOWN INDICATION
     Route: 048
  5. METFORMIN [Concomitant]
     Active Substance: METFORMIN HYDROCHLORIDE
     Route: 048
  6. OMEPRAZOLE. [Concomitant]
     Active Substance: OMEPRAZOLE
     Route: 048
  7. RAMIPRIL. [Suspect]
     Active Substance: RAMIPRIL
     Indication: PRODUCT USED FOR UNKNOWN INDICATION
     Route: 048
  8. FUROSEMIDE. [Concomitant]
     Active Substance: FUROSEMIDE
     Route: 048
  9. ALLOPURINOL/ALLOPURINOL SODIUM [Concomitant]
     Active Substance: ALLOPURINOL SODIUM
     Route: 048

REACTIONS (6)
  - Syncope [Recovering/Resolving]
  - Dizziness [Recovering/Resolving]
  - Head injury [Recovering/Resolving]
  - Malaise [Recovering/Resolving]
  - Hypotension [Recovering/Resolving]
  - Drop attacks [Recovering/Resolving]

NARRATIVE: CASE EVENT DATE: 20151116
